FAERS Safety Report 9162094 (Version 2)
Quarter: 2013Q2

REPORT INFORMATION
  Report Type: Spontaneous
  Country: US (occurrence: US)
  Receive Date: 20130314
  Receipt Date: 20130425
  Transmission Date: 20140414
  Serious: No
  Sender: FDA-Public Use
  Company Number: US-009507513-1303USA005879

PATIENT
  Sex: Male

DRUGS (4)
  1. VICTRELIS [Suspect]
     Indication: HEPATITIS C
     Dosage: UNK
     Dates: start: 20130307
  2. REBETOL [Suspect]
     Indication: HEPATITIS C
     Dosage: 6 DF, QD
     Dates: start: 20130206, end: 2013
  3. REBETOL [Suspect]
     Dosage: 4 DF, QD
     Dates: start: 2013
  4. PEGASYS [Suspect]
     Indication: HEPATITIS C
     Dosage: UNK
     Dates: start: 20130206

REACTIONS (12)
  - Leukopenia [Unknown]
  - Fatigue [Unknown]
  - Red blood cell count decreased [Unknown]
  - White blood cell count decreased [Unknown]
  - Pollakiuria [Unknown]
  - Insomnia [Unknown]
  - Pruritus [Unknown]
  - Fatigue [Unknown]
  - Dysgeusia [Unknown]
  - Anaemia [Unknown]
  - Anaemia [Unknown]
  - Haemoglobin decreased [Unknown]
